FAERS Safety Report 19467103 (Version 1)
Quarter: 2021Q2

REPORT INFORMATION
  Report Type: Spontaneous
  Country: GB (occurrence: GB)
  Receive Date: 20210628
  Receipt Date: 20210628
  Transmission Date: 20210717
  Serious: Yes (Other)
  Sender: FDA-Public Use
  Company Number: GB-TEVA-2021-GB-1926065

PATIENT
  Age: 72 Year
  Sex: Male
  Weight: 77 kg

DRUGS (9)
  1. FOSTAIR [Concomitant]
     Active Substance: BECLOMETHASONE\FORMOTEROL
     Dosage: 4 DOSAGE FORMS DAILY; FOR 3 MONTHS
     Route: 055
     Dates: start: 20210329
  2. PARACETAMOL [Concomitant]
     Active Substance: ACETAMINOPHEN
     Dosage: 8 DOSAGE FORMS DAILY;
     Dates: start: 20160628
  3. NAPROXEN. [Suspect]
     Active Substance: NAPROXEN
     Dosage: 500 MILLIGRAM DAILY;
     Dates: start: 20191022
  4. PREGABALIN. [Concomitant]
     Active Substance: PREGABALIN
     Dosage: 1 TWICE A DAY (CAN BE INCREASED TO 300MG TWICE DAILY IF NEEDED ONLY INCREASE IN WEEKLY INCREMENTS
     Dates: start: 20201221
  5. CARBOCISTEINE [Concomitant]
     Active Substance: CARBOCYSTEINE
     Dosage: 4 DOSAGE FORMS DAILY; FOR TWO MONTHS
     Dates: start: 20210329
  6. ATORVASTATIN [Concomitant]
     Active Substance: ATORVASTATIN
     Dosage: 1 DOSAGE FORMS DAILY;
     Dates: start: 20160628
  7. OMEPRAZOLE. [Concomitant]
     Active Substance: OMEPRAZOLE
     Dosage: TAKE ONE OR TWO CAPSULES DAILY
     Dates: start: 20160628
  8. TRAMADOL. [Concomitant]
     Active Substance: TRAMADOL
     Indication: ILL-DEFINED DISORDER
     Dosage: TAKE ONE  CAPSULE NO MORE THAN TWICE DAILY ONLY
     Dates: start: 20210423, end: 20210521
  9. DOUBLEBASE [Concomitant]
     Active Substance: ISOPROPYL MYRISTATE\PARAFFIN
     Dosage: 2 DOSAGE FORMS DAILY;
     Dates: start: 20160628

REACTIONS (3)
  - Anaphylactoid reaction [Recovered/Resolved]
  - Dermatitis allergic [Recovered/Resolved]
  - Angioedema [Recovered/Resolved]

NARRATIVE: CASE EVENT DATE: 20210611
